FAERS Safety Report 7055441-3 (Version None)
Quarter: 2010Q4

REPORT INFORMATION
  Report Type: 
  Country: None (occurrence: None)
  Receive Date: 20101021
  Receipt Date: 20101008
  Transmission Date: 20110411
  Serious: Yes (Other)
  Sender: FDA-Public Use
  Company Number: US-TYCO HEALTHCARE/MALLINCKRODT-T201002102

PATIENT

DRUGS (3)
  1. METHADONE HYDROCHLORIDE [Suspect]
     Indication: PAIN
     Dosage: 5 MG, Q 12 HRS
     Dates: start: 20100929
  2. METHADONE HYDROCHLORIDE [Suspect]
     Dosage: 10 MG, Q 12 HRS
     Dates: start: 20101005
  3. OXYCONTIN [Concomitant]
     Indication: PAIN
     Dosage: 20 MG, UNK
     Dates: start: 20100701, end: 20100101

REACTIONS (6)
  - ANXIETY [None]
  - COLD SWEAT [None]
  - DRUG INEFFECTIVE [None]
  - NAUSEA [None]
  - PAIN [None]
  - PALPITATIONS [None]
